FAERS Safety Report 23432292 (Version 1)
Quarter: 2024Q1

REPORT INFORMATION
  Report Type: Spontaneous
  Country: US (occurrence: None)
  Receive Date: 20240122
  Receipt Date: 20240122
  Transmission Date: 20240410
  Serious: No
  Sender: FDA-Public Use
  Company Number: None

PATIENT
  Age: 62 Year
  Sex: Female

DRUGS (1)
  1. CYANOCOBALAMIN\SEMAGLUTIDE [Suspect]
     Active Substance: CYANOCOBALAMIN\SEMAGLUTIDE
     Dosage: FREQUENCY : WEEKLY;?
     Route: 058

REACTIONS (3)
  - Nausea [None]
  - Vomiting [None]
  - Incorrect dose administered [None]

NARRATIVE: CASE EVENT DATE: 20240120
